FAERS Safety Report 4334847-7 (Version None)
Quarter: 2004Q2

REPORT INFORMATION
  Report Type: 
  Country: None (occurrence: None)
  Receive Date: 20040405
  Receipt Date: 20040325
  Transmission Date: 20050107
  Serious: Yes (Life-Threatening, Hospitalization)
  Sender: FDA-Public Use
  Company Number: 2004-03-1700

PATIENT
  Age: 55 Year
  Sex: Male

DRUGS (6)
  1. PEG-INTRON [Suspect]
     Indication: NON-HODGKIN'S LYMPHOMA STAGE III
     Dosage: QWK SUBCUTANEOUS
     Route: 058
     Dates: start: 20030401, end: 20030101
  2. ADRIABLASTINA INJECTABLE [Suspect]
     Indication: NON-HODGKIN'S LYMPHOMA STAGE III
     Dosage: 45 MG SUBCUTANEOUS
     Route: 058
     Dates: start: 20030401, end: 20030527
  3. CORTANCYL TABLETS [Suspect]
     Indication: NON-HODGKIN'S LYMPHOMA STAGE III
     Dosage: ORAL
     Route: 048
     Dates: start: 20030401, end: 20030101
  4. ENDOXAN INJECTABLE [Suspect]
     Indication: NON-HODGKIN'S LYMPHOMA STAGE III
     Dosage: 1100 MG INTRAVENOUS
     Route: 042
     Dates: start: 20030401, end: 20030527
  5. ETOPOSIDE [Suspect]
     Indication: NON-HODGKIN'S LYMPHOMA STAGE III
     Dosage: 200 MG INTRAVENOUS
     Route: 042
     Dates: start: 20030401, end: 20030527
  6. MABTHERA (RITUXIMAB) INJECTABLE [Suspect]
     Indication: NON-HODGKIN'S LYMPHOMA STAGE III
     Dosage: 500 MG INTRAVENOUS
     Route: 042
     Dates: start: 20030401, end: 20030527

REACTIONS (1)
  - GLIOBLASTOMA [None]
